FAERS Safety Report 9849509 (Version 1)
Quarter: 2014Q1

REPORT INFORMATION
  Report Type: Spontaneous
  Country: US (occurrence: None)
  Receive Date: 20140124
  Receipt Date: 20140124
  Transmission Date: 20141002
  Serious: Yes (Other)
  Sender: FDA-Public Use
  Company Number: None

PATIENT
  Age: 36 Year
  Sex: Female
  Weight: 58.97 kg

DRUGS (4)
  1. CREST PRO-HEALTH CPC ANTI GINGIVITIS/ANTI PLAQUE ORAL RINSE [Suspect]
     Indication: GINGIVITIS
     Dosage: 20 ML?4 TEASPOONS?TWICE DAILY ?BY MOUTH
     Route: 048
     Dates: start: 20140114, end: 20140116
  2. CREST PRO-HEALTH CPC ANTI GINGIVITIS/ANTI PLAQUE ORAL RINSE [Suspect]
     Indication: DENTAL PLAQUE
     Dosage: 20 ML?4 TEASPOONS?TWICE DAILY ?BY MOUTH
     Route: 048
     Dates: start: 20140114, end: 20140116
  3. GILDESS FE BIRTH CONTROL PILLS [Concomitant]
  4. GREEN SUPERFOODS [Concomitant]

REACTIONS (1)
  - Parotid gland enlargement [None]
